FAERS Safety Report 15756574 (Version 2)
Quarter: 2019Q1

REPORT INFORMATION
  Report Type: Spontaneous
  Country: US (occurrence: US)
  Receive Date: 20181224
  Receipt Date: 20190225
  Transmission Date: 20190417
  Serious: No
  Sender: FDA-Public Use
  Company Number: US-TEVA-2018-US-986817

PATIENT
  Sex: Female

DRUGS (1)
  1. AJOVY [Suspect]
     Active Substance: FREMANEZUMAB-VFRM
     Indication: MIGRAINE
     Route: 065
     Dates: start: 20181012

REACTIONS (5)
  - Injection site pruritus [Recovering/Resolving]
  - Injection site rash [Recovering/Resolving]
  - Injection site induration [Recovering/Resolving]
  - Injection site erythema [Recovering/Resolving]
  - Injection site discolouration [Recovering/Resolving]

NARRATIVE: CASE EVENT DATE: 201811
